FAERS Safety Report 4989926-8 (Version None)
Quarter: 2006Q2

REPORT INFORMATION
  Report Type: 
  Country: None (occurrence: None)
  Receive Date: 20060427
  Receipt Date: 20060419
  Transmission Date: 20061013
  Serious: Yes (Hospitalization, Other)
  Sender: FDA-Public Use
  Company Number: 224284

PATIENT
  Age: 36 Year
  Sex: Male

DRUGS (2)
  1. SOMATROPIN (SOMATROPIN) POWDER FOR INJECTION [Suspect]
  2. ANABOLIC STEROIDS (ANABOLIC STEROIDS NOS) [Concomitant]

REACTIONS (3)
  - DYSPHONIA [None]
  - LARYNGOCELE [None]
  - STRIDOR [None]
